FAERS Safety Report 7717351-5 (Version None)
Quarter: 2011Q3

REPORT INFORMATION
  Report Type: 
  Country: None (occurrence: None)
  Receive Date: 20110830
  Receipt Date: 20110823
  Transmission Date: 20111222
  Serious: Yes (Other)
  Sender: FDA-Public Use
  Company Number: JP-JNJFOC-20110811626

PATIENT
  Age: 6 Decade

DRUGS (4)
  1. REMICADE [Suspect]
     Indication: CROHN'S DISEASE
     Route: 042
  2. LAC-B [Concomitant]
     Route: 048
  3. PENTASA [Concomitant]
     Route: 048
  4. REMICADE [Suspect]
     Route: 042
     Dates: start: 20110721

REACTIONS (2)
  - LYMPHOMA [None]
  - HISTIOCYTOSIS HAEMATOPHAGIC [None]
